FAERS Safety Report 20834423 (Version 1)
Quarter: 2022Q2

REPORT INFORMATION
  Report Type: 
  Country: None (occurrence: None)
  Receive Date: 20220516
  Receipt Date: 20220516
  Transmission Date: 20220721
  Serious: No
  Sender: FDA-Public Use
  Company Number: US-ROCHE-2147032

PATIENT
  Weight: 111.1 kg

DRUGS (20)
  1. ATEZOLIZUMAB [Suspect]
     Active Substance: ATEZOLIZUMAB
     Dosage: LAST DOSE OF ATEZOLIZUMAB: 01/JUN/2018
     Dates: start: 20180504
  2. FLUOROURACIL [Suspect]
     Active Substance: FLUOROURACIL
     Dosage: LAST DOSE ON 01/JUN/2018?OVER 2 HOURS ON DAY 1 FOLLOWED BY 2400MG/M2 IV OVER 46 HOURS DAYS 1-3
     Dates: start: 20180504
  3. ELOXATIN [Suspect]
     Active Substance: OXALIPLATIN
     Dosage: LAST DOSE ON 01/JUN/2018
     Dates: start: 20180504
  4. LEUCOVORIN CALCIUM [Suspect]
     Active Substance: LEUCOVORIN CALCIUM
     Dosage: LAST DOSE ON 01/JUN/2018
     Dates: start: 20180504
  5. DEXAMETHASONE [Suspect]
     Active Substance: DEXAMETHASONE
  6. ACETAMINOPHEN [Concomitant]
     Active Substance: ACETAMINOPHEN
  7. ALBUTEROL [Concomitant]
     Active Substance: ALBUTEROL
  8. BUDESONIDE [Concomitant]
     Active Substance: BUDESONIDE
  9. DEXAMETHASONE [Concomitant]
     Active Substance: DEXAMETHASONE
  10. DOCUSATE SODIUM [Concomitant]
     Active Substance: DOCUSATE SODIUM
  11. HEPARIN SODIUM [Concomitant]
     Active Substance: HEPARIN SODIUM
  12. IPRATROPIUM [Concomitant]
     Active Substance: IPRATROPIUM
  13. LIDOCAINE\PRILOCAINE [Concomitant]
     Active Substance: LIDOCAINE\PRILOCAINE
  14. ONDANSETRON [Concomitant]
     Active Substance: ONDANSETRON
  15. PROCHLORPERAZINE [Concomitant]
     Active Substance: PROCHLORPERAZINE
  16. TIOTROPIUM [Concomitant]
     Active Substance: TIOTROPIUM
  17. LEVAQUIN [Concomitant]
     Active Substance: LEVOFLOXACIN
  18. TIOTROPIUM BROMIDE [Concomitant]
     Active Substance: TIOTROPIUM BROMIDE
  19. FLUTICASONE PROPIONATE\SALMETEROL XINAFOATE [Concomitant]
     Active Substance: FLUTICASONE PROPIONATE\SALMETEROL XINAFOATE
  20. BUDESONIDE\FORMOTEROL [Concomitant]
     Active Substance: BUDESONIDE\FORMOTEROL

REACTIONS (2)
  - Sudden death [None]
  - Hyperglycaemia [None]

NARRATIVE: CASE EVENT DATE: 20180615
